FAERS Safety Report 20558471 (Version 1)
Quarter: 2022Q1

REPORT INFORMATION
  Report Type: Spontaneous
  Country: US (occurrence: US)
  Receive Date: 20220307
  Receipt Date: 20220307
  Transmission Date: 20220423
  Serious: Yes (Hospitalization, Other)
  Sender: FDA-Public Use
  Company Number: US-DENDREON PHARMACEUTICAL LLC-2022DEN000037

PATIENT

DRUGS (2)
  1. PROVENGE [Suspect]
     Active Substance: SIPULEUCEL-T
     Indication: Prostate cancer metastatic
     Dosage: DOSE 1
     Route: 042
     Dates: start: 20220210, end: 20220210
  2. KEFLEX [Suspect]
     Active Substance: CEPHALEXIN
     Dosage: UNK
     Dates: start: 202202, end: 202202

REACTIONS (4)
  - Hydronephrosis [Recovering/Resolving]
  - Pulmonary embolism [Recovering/Resolving]
  - Vomiting [Recovered/Resolved]
  - Clostridium difficile colitis [Recovering/Resolving]

NARRATIVE: CASE EVENT DATE: 20220129
